FAERS Safety Report 14056674 (Version 4)
Quarter: 2017Q4

REPORT INFORMATION
  Report Type: Spontaneous
  Country: GB (occurrence: GB)
  Receive Date: 20171006
  Receipt Date: 20171108
  Transmission Date: 20180321
  Serious: Yes (Hospitalization, Other)
  Sender: FDA-Public Use
  Company Number: GB-TEVA-811602ACC

PATIENT
  Age: 78 Year
  Sex: Male
  Weight: 86 kg

DRUGS (53)
  1. SUTENT [Concomitant]
     Active Substance: SUNITINIB MALATE
     Indication: CLEAR CELL RENAL CELL CARCINOMA
     Dates: start: 20140724, end: 20170704
  2. SUTENT [Concomitant]
     Active Substance: SUNITINIB MALATE
     Indication: CLEAR CELL RENAL CELL CARCINOMA
     Dates: start: 20140724, end: 20170704
  3. SUTENT [Concomitant]
     Active Substance: SUNITINIB MALATE
     Indication: CLEAR CELL RENAL CELL CARCINOMA
     Dates: start: 20140724, end: 20170704
  4. SUTENT [Concomitant]
     Active Substance: SUNITINIB MALATE
     Indication: CLEAR CELL RENAL CELL CARCINOMA
     Dates: start: 20140724, end: 20170704
  5. SUTENT [Concomitant]
     Active Substance: SUNITINIB MALATE
     Indication: CLEAR CELL RENAL CELL CARCINOMA
     Dates: start: 20140724, end: 20170704
  6. SUTENT [Concomitant]
     Active Substance: SUNITINIB MALATE
     Indication: CLEAR CELL RENAL CELL CARCINOMA
     Dates: start: 20140724, end: 20170704
  7. SUTENT [Concomitant]
     Active Substance: SUNITINIB MALATE
     Indication: CLEAR CELL RENAL CELL CARCINOMA
     Dates: start: 20140724, end: 20170704
  8. SUTENT [Concomitant]
     Active Substance: SUNITINIB MALATE
     Indication: CLEAR CELL RENAL CELL CARCINOMA
     Dates: start: 20140724, end: 20170704
  9. SUTENT [Concomitant]
     Active Substance: SUNITINIB MALATE
     Indication: CLEAR CELL RENAL CELL CARCINOMA
     Dates: start: 20140724, end: 20170704
  10. SUTENT [Concomitant]
     Active Substance: SUNITINIB MALATE
     Indication: CLEAR CELL RENAL CELL CARCINOMA
     Dates: start: 20140724, end: 20170704
  11. SUTENT [Concomitant]
     Active Substance: SUNITINIB MALATE
     Indication: CLEAR CELL RENAL CELL CARCINOMA
     Dates: start: 20140724, end: 20170704
  12. SUTENT [Concomitant]
     Active Substance: SUNITINIB MALATE
     Indication: CLEAR CELL RENAL CELL CARCINOMA
  13. SUTENT [Concomitant]
     Active Substance: SUNITINIB MALATE
     Indication: CLEAR CELL RENAL CELL CARCINOMA
  14. INLYTA [Interacting]
     Active Substance: AXITINIB
     Indication: CLEAR CELL RENAL CELL CARCINOMA
     Dosage: 10 MILLIGRAM DAILY;
     Route: 048
     Dates: start: 20170819, end: 20170829
  15. THYROXINE [Suspect]
     Active Substance: LEVOTHYROXINE
     Route: 065
     Dates: start: 201708
  16. SUTENT [Concomitant]
     Active Substance: SUNITINIB MALATE
     Indication: RENAL CANCER METASTATIC
     Route: 048
     Dates: start: 20140724, end: 20170704
  17. SUTENT [Concomitant]
     Active Substance: SUNITINIB MALATE
     Indication: CLEAR CELL RENAL CELL CARCINOMA
     Dates: start: 20140724, end: 20170704
  18. SUTENT [Concomitant]
     Active Substance: SUNITINIB MALATE
     Indication: CLEAR CELL RENAL CELL CARCINOMA
     Dates: start: 20140724, end: 20170704
  19. SUTENT [Concomitant]
     Active Substance: SUNITINIB MALATE
     Indication: CLEAR CELL RENAL CELL CARCINOMA
     Dates: start: 20140724, end: 20170704
  20. SUTENT [Concomitant]
     Active Substance: SUNITINIB MALATE
     Indication: CLEAR CELL RENAL CELL CARCINOMA
     Dates: start: 20140724, end: 20170704
  21. TRAMADOL HYDROCHLORIDE. [Suspect]
     Active Substance: TRAMADOL HYDROCHLORIDE
     Indication: POLYMYALGIA RHEUMATICA
     Dosage: UNK
     Dates: start: 201708
  22. SUTENT [Concomitant]
     Active Substance: SUNITINIB MALATE
     Indication: CLEAR CELL RENAL CELL CARCINOMA
     Dates: start: 20140724, end: 20170704
  23. SUTENT [Concomitant]
     Active Substance: SUNITINIB MALATE
     Indication: CLEAR CELL RENAL CELL CARCINOMA
     Dates: start: 20140724, end: 20170704
  24. SUTENT [Concomitant]
     Active Substance: SUNITINIB MALATE
     Indication: CLEAR CELL RENAL CELL CARCINOMA
     Dates: start: 20140724, end: 20170704
  25. SUTENT [Concomitant]
     Active Substance: SUNITINIB MALATE
     Indication: CLEAR CELL RENAL CELL CARCINOMA
     Dates: start: 20140724, end: 20170704
  26. SUTENT [Concomitant]
     Active Substance: SUNITINIB MALATE
     Indication: CLEAR CELL RENAL CELL CARCINOMA
     Dates: start: 20140724, end: 20170704
  27. SUTENT [Concomitant]
     Active Substance: SUNITINIB MALATE
     Indication: CLEAR CELL RENAL CELL CARCINOMA
     Dates: start: 20140724, end: 20170704
  28. SUTENT [Concomitant]
     Active Substance: SUNITINIB MALATE
     Indication: CLEAR CELL RENAL CELL CARCINOMA
     Dates: start: 20140724, end: 20170704
  29. SUTENT [Concomitant]
     Active Substance: SUNITINIB MALATE
     Indication: CLEAR CELL RENAL CELL CARCINOMA
     Dates: start: 20140724, end: 20170704
  30. SUTENT [Concomitant]
     Active Substance: SUNITINIB MALATE
     Indication: CLEAR CELL RENAL CELL CARCINOMA
     Dates: start: 20140724, end: 20170704
  31. SUTENT [Concomitant]
     Active Substance: SUNITINIB MALATE
     Indication: CLEAR CELL RENAL CELL CARCINOMA
     Dates: start: 20140724, end: 20170704
  32. SUTENT [Concomitant]
     Active Substance: SUNITINIB MALATE
     Indication: CLEAR CELL RENAL CELL CARCINOMA
     Dates: start: 20140724, end: 20170704
  33. SUTENT [Concomitant]
     Active Substance: SUNITINIB MALATE
     Indication: CLEAR CELL RENAL CELL CARCINOMA
     Dates: start: 20140724, end: 20170704
  34. SUTENT [Concomitant]
     Active Substance: SUNITINIB MALATE
     Indication: CLEAR CELL RENAL CELL CARCINOMA
     Dates: start: 20140724, end: 20170704
  35. SUTENT [Concomitant]
     Active Substance: SUNITINIB MALATE
     Indication: CLEAR CELL RENAL CELL CARCINOMA
     Dates: start: 20140724, end: 20170704
  36. SUTENT [Concomitant]
     Active Substance: SUNITINIB MALATE
     Indication: CLEAR CELL RENAL CELL CARCINOMA
     Dates: start: 20140724, end: 20170704
  37. SUTENT [Concomitant]
     Active Substance: SUNITINIB MALATE
     Indication: CLEAR CELL RENAL CELL CARCINOMA
     Dates: start: 20140724, end: 20170704
  38. SUTENT [Concomitant]
     Active Substance: SUNITINIB MALATE
     Indication: CLEAR CELL RENAL CELL CARCINOMA
     Dates: start: 20140724, end: 20170704
  39. SUTENT [Concomitant]
     Active Substance: SUNITINIB MALATE
     Indication: CLEAR CELL RENAL CELL CARCINOMA
     Dates: start: 20140724, end: 20170704
  40. SUTENT [Concomitant]
     Active Substance: SUNITINIB MALATE
     Indication: CLEAR CELL RENAL CELL CARCINOMA
     Dates: start: 20140724, end: 20170704
  41. SUTENT [Concomitant]
     Active Substance: SUNITINIB MALATE
     Indication: CLEAR CELL RENAL CELL CARCINOMA
     Dates: start: 20140724, end: 20170704
  42. SUTENT [Concomitant]
     Active Substance: SUNITINIB MALATE
     Indication: CLEAR CELL RENAL CELL CARCINOMA
     Dates: start: 20140724, end: 20170704
  43. SUTENT [Concomitant]
     Active Substance: SUNITINIB MALATE
     Indication: CLEAR CELL RENAL CELL CARCINOMA
     Dates: start: 20140724, end: 20170704
  44. SUTENT [Concomitant]
     Active Substance: SUNITINIB MALATE
     Indication: CLEAR CELL RENAL CELL CARCINOMA
     Dates: start: 20140724, end: 20170704
  45. SUTENT [Concomitant]
     Active Substance: SUNITINIB MALATE
     Indication: CLEAR CELL RENAL CELL CARCINOMA
     Dates: start: 20140724, end: 20170704
  46. SUTENT [Concomitant]
     Active Substance: SUNITINIB MALATE
     Indication: CLEAR CELL RENAL CELL CARCINOMA
     Dates: start: 20140724, end: 20170704
  47. SUTENT [Concomitant]
     Active Substance: SUNITINIB MALATE
     Indication: CLEAR CELL RENAL CELL CARCINOMA
     Dates: start: 20140724, end: 20170704
  48. SUTENT [Concomitant]
     Active Substance: SUNITINIB MALATE
     Indication: CLEAR CELL RENAL CELL CARCINOMA
     Dates: start: 20140724, end: 20170704
  49. SUTENT [Concomitant]
     Active Substance: SUNITINIB MALATE
     Indication: CLEAR CELL RENAL CELL CARCINOMA
     Dates: start: 20140724, end: 20170704
  50. SUTENT [Concomitant]
     Active Substance: SUNITINIB MALATE
     Indication: CLEAR CELL RENAL CELL CARCINOMA
     Dates: start: 20140724, end: 20170704
  51. SUTENT [Concomitant]
     Active Substance: SUNITINIB MALATE
     Indication: CLEAR CELL RENAL CELL CARCINOMA
     Dates: start: 20140724, end: 20170704
  52. SUTENT [Concomitant]
     Active Substance: SUNITINIB MALATE
     Indication: CLEAR CELL RENAL CELL CARCINOMA
     Dates: start: 20140724, end: 20170704
  53. SUTENT [Concomitant]
     Active Substance: SUNITINIB MALATE
     Indication: CLEAR CELL RENAL CELL CARCINOMA
     Route: 048
     Dates: end: 201708

REACTIONS (15)
  - Fatigue [Not Recovered/Not Resolved]
  - Hypertension [Not Recovered/Not Resolved]
  - Depressed mood [Not Recovered/Not Resolved]
  - Feeling abnormal [Not Recovered/Not Resolved]
  - Drug interaction [Unknown]
  - Speech disorder [Not Recovered/Not Resolved]
  - Aphonia [Not Recovered/Not Resolved]
  - Dyspnoea [Not Recovered/Not Resolved]
  - Tenderness [Unknown]
  - Quality of life decreased [Unknown]
  - Dysphonia [Not Recovered/Not Resolved]
  - Muscular weakness [Not Recovered/Not Resolved]
  - Tendon rupture [Unknown]
  - Gait disturbance [Not Recovered/Not Resolved]
  - Neoplasm progression [Unknown]

NARRATIVE: CASE EVENT DATE: 2017
